FAERS Safety Report 4510480-9 (Version None)
Quarter: 2004Q4

REPORT INFORMATION
  Report Type: 
  Country: None (occurrence: None)
  Receive Date: 20041124
  Receipt Date: 20041115
  Transmission Date: 20050328
  Serious: Yes (Disabling)
  Sender: FDA-Public Use
  Company Number: JP-GLAXOSMITHKLINE-B0357463A

PATIENT
  Age: 68 Year
  Sex: Male

DRUGS (2)
  1. ZANTAC [Suspect]
     Indication: GASTRIC ULCER
     Dosage: 75MG TWICE PER DAY
     Route: 048
     Dates: start: 19960305
  2. PRAVASTATIN [Concomitant]
     Indication: HYPERLIPIDAEMIA
     Route: 048
     Dates: start: 19990101

REACTIONS (1)
  - WHITE BLOOD CELL COUNT DECREASED [None]
